FAERS Safety Report 7972730-6 (Version None)
Quarter: 2011Q4

REPORT INFORMATION
  Report Type: 
  Country: None (occurrence: None)
  Receive Date: 20111213
  Receipt Date: 20111206
  Transmission Date: 20120403
  Serious: No
  Sender: FDA-Public Use
  Company Number: US-PFIZER INC-2011299138

PATIENT
  Sex: Male
  Weight: 106 kg

DRUGS (2)
  1. PROTONIX [Suspect]
     Indication: GASTROOESOPHAGEAL REFLUX DISEASE
     Dosage: UNK
     Dates: end: 20111206
  2. CITALOPRAM [Concomitant]
     Indication: ANXIETY
     Dosage: UNK

REACTIONS (1)
  - DRUG SCREEN FALSE POSITIVE [None]
